APPROVED DRUG PRODUCT: ONDANSETRON HYDROCHLORIDE
Active Ingredient: ONDANSETRON HYDROCHLORIDE
Strength: EQ 2MG BASE/ML
Dosage Form/Route: INJECTABLE;INJECTION
Application: A090424 | Product #001
Applicant: AVET LIFESCIENCES LTD
Approved: Apr 16, 2010 | RLD: No | RS: No | Type: DISCN